FAERS Safety Report 6517595-4 (Version None)
Quarter: 2009Q4

REPORT INFORMATION
  Report Type: 
  Country: None (occurrence: None)
  Receive Date: 20091224
  Receipt Date: 20091214
  Transmission Date: 20100525
  Serious: Yes (Other)
  Sender: FDA-Public Use
  Company Number: PHHY2009FR55614

PATIENT
  Age: 78 Year
  Sex: Female

DRUGS (6)
  1. ACLASTA [Suspect]
     Indication: COMPLEX REGIONAL PAIN SYNDROME
     Dosage: UNK
     Dates: start: 20091108
  2. CARDENSIEL [Concomitant]
     Indication: CARDIAC FAILURE
  3. COZAAR [Concomitant]
     Indication: HYPERTENSION
  4. INIPOMP [Concomitant]
  5. MONOCRIXO [Concomitant]
  6. EFFERALGAN CODEINE [Concomitant]

REACTIONS (5)
  - ARTHRALGIA [None]
  - JOINT EFFUSION [None]
  - OEDEMA [None]
  - PYREXIA [None]
  - WALKING AID USER [None]
